FAERS Safety Report 6156882-9 (Version None)
Quarter: 2009Q2

REPORT INFORMATION
  Report Type: 
  Country: None (occurrence: None)
  Receive Date: 20090410
  Receipt Date: 20090410
  Transmission Date: 20091009
  Serious: Yes (Death)
  Sender: FDA-Public Use
  Company Number: None

PATIENT
  Sex: Female
  Weight: 71.6683 kg

DRUGS (1)
  1. TRI-SPRINTEC [Suspect]
     Indication: CONTRACEPTION
     Dosage: 1 PILL ONCE A DAY
     Dates: start: 20081201, end: 20090115

REACTIONS (5)
  - EAR PAIN [None]
  - HEADACHE [None]
  - INFLUENZA LIKE ILLNESS [None]
  - INTRACRANIAL VENOUS SINUS THROMBOSIS [None]
  - VISUAL IMPAIRMENT [None]
